FAERS Safety Report 13497802 (Version 3)
Quarter: 2017Q3

REPORT INFORMATION
  Report Type: Spontaneous
  Country: US (occurrence: US)
  Receive Date: 20170428
  Receipt Date: 20170810
  Transmission Date: 20171127
  Serious: Yes (Disabling, Other)
  Sender: FDA-Public Use
  Company Number: US-REGENERON PHARMACEUTICALS, INC.-2017-14880

PATIENT

DRUGS (11)
  1. EYLEA [Suspect]
     Active Substance: AFLIBERCEPT
     Dosage: 2 MG MILLIGRAM(S), 3 DOSES MONTHLY, THEN EVERY 8 WEEKS, LAST DOSE,RIGHT EYE (OD)
     Route: 031
     Dates: start: 20170410, end: 20170410
  2. MOTRIN PM [Concomitant]
     Active Substance: DIPHENHYDRAMINE CITRATE\IBUPROFEN
     Indication: PRODUCT USED FOR UNKNOWN INDICATION
     Dosage: UNK
     Dates: start: 20140220
  3. EYLEA [Suspect]
     Active Substance: AFLIBERCEPT
     Indication: NEOVASCULAR AGE-RELATED MACULAR DEGENERATION
     Dosage: 2 MG MILLIGRAM(S), 3 DOSES MONTHLY, THEN EVERY 8 WEEKS, RIGHT EYE (OD)
     Route: 031
     Dates: start: 20161208, end: 20161208
  4. LEVOCETIRIZINE [Concomitant]
     Active Substance: LEVOCETIRIZINE
     Indication: PRODUCT USED FOR UNKNOWN INDICATION
  5. EYLEA [Suspect]
     Active Substance: AFLIBERCEPT
     Dosage: 2 MG MILLIGRAM(S), 3 DOSES MONTHLY, THEN EVERY 8 WEEKS,RIGHT EYE (OD)
     Route: 031
     Dates: start: 20170207, end: 20170207
  6. PRED FORTE [Concomitant]
     Active Substance: PREDNISOLONE ACETATE
     Indication: LASER THERAPY
     Dosage: UNK
     Dates: end: 20161208
  7. CARVEDILOL. [Concomitant]
     Active Substance: CARVEDILOL
     Indication: PRODUCT USED FOR UNKNOWN INDICATION
     Dosage: UNK
     Dates: start: 20140220
  8. OMEPRAZOLE. [Concomitant]
     Active Substance: OMEPRAZOLE
     Indication: PRODUCT USED FOR UNKNOWN INDICATION
     Dosage: UNK
     Dates: start: 20140220
  9. EYLEA [Suspect]
     Active Substance: AFLIBERCEPT
     Dosage: 2 MG MILLIGRAM(S), 3 DOSES MONTHLY, THEN EVERY 8 WEEKS,RIGHT EYE (OD)
     Route: 031
     Dates: start: 20170110, end: 20170110
  10. ASPIRIN. [Concomitant]
     Active Substance: ASPIRIN
     Indication: PRODUCT USED FOR UNKNOWN INDICATION
     Dosage: UNK
     Dates: start: 20140220
  11. TYLENOL [Concomitant]
     Active Substance: ACETAMINOPHEN
     Indication: PRODUCT USED FOR UNKNOWN INDICATION
     Dosage: UNK
     Dates: start: 20140220

REACTIONS (12)
  - Endophthalmitis [Recovered/Resolved]
  - Vision blurred [Not Recovered/Not Resolved]
  - Eye infection staphylococcal [Unknown]
  - Visual acuity reduced [Unknown]
  - Vitritis [Unknown]
  - Eye inflammation [Not Recovered/Not Resolved]
  - Visual impairment [Not Recovered/Not Resolved]
  - Blindness unilateral [Unknown]
  - Eye pain [Unknown]
  - Ocular hyperaemia [Unknown]
  - Vitreous floaters [Unknown]
  - Drug ineffective [Unknown]

NARRATIVE: CASE EVENT DATE: 20161208
